FAERS Safety Report 15391628 (Version 1)
Quarter: 2018Q3

REPORT INFORMATION
  Report Type: Spontaneous
  Country: US (occurrence: US)
  Receive Date: 20180910
  Receipt Date: 20180910
  Transmission Date: 20181010
  Serious: Yes (Hospitalization)
  Sender: FDA-Public Use
  Company Number: None

PATIENT
  Age: 44 Year
  Sex: Female

DRUGS (1)
  1. REMICADE [Suspect]
     Active Substance: INFLIXIMAB
     Indication: CROHN^S DISEASE
     Dosage: ?          OTHER FREQUENCY:AT WEEKS 0, 2 + 6;?
     Route: 042
     Dates: start: 20180731

REACTIONS (2)
  - Pneumonia [None]
  - Drug ineffective [None]

NARRATIVE: CASE EVENT DATE: 20180820
